FAERS Safety Report 10745714 (Version 1)
Quarter: 2015Q1

REPORT INFORMATION
  Report Type: Spontaneous
  Country: US (occurrence: None)
  Receive Date: 20150127
  Receipt Date: 20150127
  Transmission Date: 20150721
  Serious: Yes (Other)
  Sender: FDA-Public Use
  Company Number: None

PATIENT
  Age: 40 Year
  Sex: Male
  Weight: 74.84 kg

DRUGS (1)
  1. TESTOSTERONE INJECTIONS [Suspect]
     Active Substance: TESTOSTERONE
     Indication: HYPOGONADISM
     Dosage: 1 CC
     Route: 030
     Dates: start: 20150110, end: 20150110

REACTIONS (3)
  - Pruritus [None]
  - Rash papular [None]
  - Throat tightness [None]

NARRATIVE: CASE EVENT DATE: 20150110
